FAERS Safety Report 9189368 (Version 1)
Quarter: 2013Q1

REPORT INFORMATION
  Report Type: Spontaneous
  Country: BR (occurrence: BR)
  Receive Date: 20130326
  Receipt Date: 20130326
  Transmission Date: 20140127
  Serious: Yes (Other)
  Sender: FDA-Public Use
  Company Number: PHHY2013BR027863

PATIENT
  Sex: Female

DRUGS (8)
  1. FEMARA [Suspect]
     Dosage: 2.5 MG, UNK
     Route: 048
     Dates: start: 20060811
  2. NAPRIX [Concomitant]
     Indication: HYPERTENSION
     Dosage: 5 MG, QD
     Route: 048
  3. CARDISAN [Concomitant]
     Indication: HYPERTENSION
     Dosage: 90 MG, QD
     Route: 048
  4. LASIX [Concomitant]
     Indication: HYPERTENSION
     Dosage: 40 MG, BID
     Route: 048
  5. DIAMICRON [Concomitant]
     Indication: DIABETES MELLITUS
     Dosage: 60 MG, QD
  6. GLIFAGE [Concomitant]
     Indication: DIABETES MELLITUS
     Dosage: 500 MG, TID
  7. ONGLYZA [Concomitant]
     Indication: DIABETES MELLITUS
     Dosage: 5 MG, QD
     Route: 048
  8. LEVEMIR [Concomitant]
     Indication: DIABETES MELLITUS
     Dosage: 10 U/L, UNK
     Route: 058

REACTIONS (2)
  - Pulmonary hypertension [Unknown]
  - Metastases to lung [Unknown]
